FAERS Safety Report 10204619 (Version 1)
Quarter: 2014Q2

REPORT INFORMATION
  Report Type: Report from Study
  Country: US (occurrence: US)
  Receive Date: 20140529
  Receipt Date: 20140529
  Transmission Date: 20141212
  Serious: Yes (Hospitalization)
  Sender: FDA-Public Use
  Company Number: US-MPIJNJ-2014MPI001522

PATIENT
  Age: 17 Year
  Sex: Female
  Weight: 79.8 kg

DRUGS (5)
  1. VELCADE [Suspect]
     Indication: ACUTE MYELOID LEUKAEMIA
     Dosage: 1.3 MG/M2, OVER 3-5 SECONDS ON DAYS 1, 4, AND 8
     Route: 040
     Dates: start: 20140502
  2. CYTARABINE [Suspect]
     Indication: ACUTE MYELOID LEUKAEMIA
     Dosage: 100 MG/M2/DOSE OR 3.3 MG/KG/DOSE BID OVER 15-30 MINUTES ON DAYS 1-10
     Route: 042
     Dates: start: 20140502
  3. DAUNORUBICIN HYDROCHLORIDE [Suspect]
     Indication: ACUTE MYELOID LEUKAEMIA
     Dosage: 50 MG/M2/DOSE OR 1.7 MG/KG/DOSE OVER 1-15 MINUTES ON DAYS 1, 3 AND 5
     Route: 042
     Dates: start: 20140502
  4. ETOPOSIDE [Suspect]
     Indication: ACUTE MYELOID LEUKAEMIA
     Dosage: 100 MG/M2/DOSE OR 3.3 MG/KG/DOSE OVER 60-120 MINUTES ON DAYS 1-5
     Route: 042
     Dates: start: 20140502
  5. CEFEPIME [Suspect]
     Dosage: UNK

REACTIONS (4)
  - Colitis [Recovering/Resolving]
  - Upper respiratory tract infection [Recovering/Resolving]
  - Rash maculo-papular [Recovering/Resolving]
  - Febrile neutropenia [Recovering/Resolving]
